FAERS Safety Report 11105967 (Version 2)
Quarter: 2015Q2

REPORT INFORMATION
  Report Type: Spontaneous
  Country: US (occurrence: None)
  Receive Date: 20150508
  Receipt Date: 20150518
  Transmission Date: 20150821
  Serious: Yes (Hospitalization)
  Sender: FDA-Public Use
  Company Number: 150164

PATIENT
  Age: 69 Year
  Sex: Female
  Weight: 86.18 kg

DRUGS (9)
  1. GABAPENTIN. [Concomitant]
     Active Substance: GABAPENTIN
  2. VITAMIN B12 [Concomitant]
     Active Substance: CYANOCOBALAMIN
  3. RELIV SUPPLEMENTS [Concomitant]
  4. PREDNISONE. [Concomitant]
     Active Substance: PREDNISONE
  5. TRAMADOL [Concomitant]
     Active Substance: TRAMADOL
  6. VITAMIN D [Concomitant]
     Active Substance: CHOLECALCIFEROL
  7. FISH OIL [Concomitant]
     Active Substance: FISH OIL
  8. TRIAMCINOLONE CREAM [Concomitant]
  9. SUPREP BOWEL PREP [Suspect]
     Active Substance: MAGNESIUM SULFATE\POTASSIUM SULFATE\SODIUM SULFATE
     Indication: COLONOSCOPY
     Dosage: 2 X 6 OZ. BOTTLE
     Route: 048
     Dates: start: 20141204, end: 20141205

REACTIONS (17)
  - Activities of daily living impaired [None]
  - Cyanosis [None]
  - Haematuria [None]
  - Proteinuria [None]
  - Rheumatoid factor increased [None]
  - Paraesthesia [None]
  - Purpura [None]
  - Arthralgia [None]
  - Skin ulcer [None]
  - Gravitational oedema [None]
  - Raynaud^s phenomenon [None]
  - Neuralgia [None]
  - Nephropathy [None]
  - Rash [None]
  - Hypoaesthesia [None]
  - Henoch-Schonlein purpura [None]
  - Scar [None]

NARRATIVE: CASE EVENT DATE: 20141204
